FAERS Safety Report 6010336-9 (Version None)
Quarter: 2008Q4

REPORT INFORMATION
  Report Type: 
  Country: None (occurrence: None)
  Receive Date: 20081218
  Receipt Date: 20080806
  Transmission Date: 20090506
  Serious: No
  Sender: FDA-Public Use
  Company Number: A0742543A

PATIENT
  Sex: Female

DRUGS (1)
  1. FLONASE [Suspect]
     Route: 045

REACTIONS (3)
  - HEADACHE [None]
  - NASAL DISCOMFORT [None]
  - PRODUCT QUALITY ISSUE [None]
